FAERS Safety Report 17817612 (Version 2)
Quarter: 2020Q3

REPORT INFORMATION
  Report Type: Report from Study
  Country: US (occurrence: US)
  Receive Date: 20200522
  Receipt Date: 20200806
  Transmission Date: 20201102
  Serious: Yes (Death, Hospitalization, Other)
  Sender: FDA-Public Use
  Company Number: US-BAYER-2020-086998

PATIENT
  Age: 28 Year
  Sex: Female

DRUGS (1)
  1. STIVARGA [Suspect]
     Active Substance: REGORAFENIB
     Indication: COLON CANCER
     Dosage: 80 MG, QD AFTER A LOW FAT MEAL ON DAYS 1 TO 21, FOLLOWED BY 7 DAY
     Route: 048
     Dates: start: 20200326, end: 20200509

REACTIONS (8)
  - Death [Fatal]
  - Intestinal obstruction [None]
  - Pleural effusion [None]
  - Off label use [None]
  - Colon cancer recurrent [None]
  - Drug intolerance [None]
  - Drug ineffective [None]
  - Ascites [None]

NARRATIVE: CASE EVENT DATE: 202004
